FAERS Safety Report 8070692-7 (Version None)
Quarter: 2012Q1

REPORT INFORMATION
  Report Type: 
  Country: None (occurrence: None)
  Receive Date: 20120125
  Receipt Date: 20120123
  Transmission Date: 20120608
  Serious: Yes (Death, Other)
  Sender: FDA-Public Use
  Company Number: PHEH2008US00490

PATIENT
  Sex: Male

DRUGS (1)
  1. ZOMETA [Suspect]
     Dosage: 4 MG, QMO
     Route: 042

REACTIONS (38)
  - DEATH [None]
  - BLADDER OUTLET OBSTRUCTION [None]
  - CALCULUS URETERIC [None]
  - NEUROPATHY PERIPHERAL [None]
  - PROSTATE CANCER METASTATIC [None]
  - CONFUSIONAL STATE [None]
  - AORTIC ANEURYSM [None]
  - NEOPLASM MALIGNANT [None]
  - SPINAL OSTEOARTHRITIS [None]
  - MYOCARDIAL ISCHAEMIA [None]
  - PAIN [None]
  - ANHEDONIA [None]
  - HYPOTENSION [None]
  - ACUTE PRERENAL FAILURE [None]
  - DEAFNESS BILATERAL [None]
  - HIATUS HERNIA [None]
  - INJURY [None]
  - URINARY TRACT INFECTION [None]
  - LUMBAR RADICULOPATHY [None]
  - SPINAL COMPRESSION FRACTURE [None]
  - METASTASES TO BONE [None]
  - METASTASES TO PELVIS [None]
  - INTERVERTEBRAL DISC DEGENERATION [None]
  - GOUT [None]
  - OSTEONECROSIS OF JAW [None]
  - PROSTATOMEGALY [None]
  - CORONARY ARTERY DISEASE [None]
  - HEPATIC CYST [None]
  - UPPER RESPIRATORY TRACT INFECTION [None]
  - METASTASES TO SPINE [None]
  - DIABETES MELLITUS [None]
  - HYPERLIPIDAEMIA [None]
  - VERTIGO [None]
  - DIZZINESS [None]
  - OSTEOARTHRITIS [None]
  - ANXIETY [None]
  - NEPHROLITHIASIS [None]
  - AORTIC ARTERIOSCLEROSIS [None]
